FAERS Safety Report 4559257-9 (Version None)
Quarter: 2005Q1

REPORT INFORMATION
  Report Type: 
  Country: None (occurrence: None)
  Receive Date: 20050121
  Receipt Date: 20050121
  Transmission Date: 20050727
  Serious: Yes (Other)
  Sender: FDA-Public Use
  Company Number: None

PATIENT
  Age: 7 Month
  Sex: Male
  Weight: 8.6183 kg

DRUGS (2)
  1. CHILDREN'S MOTRIN [Suspect]
     Indication: PYREXIA
     Dosage: 1.75ML   ONCE DAILY AS   ORAL
     Route: 048
     Dates: start: 20040918, end: 20041001
  2. CHILDREN'S MOTRIN [Suspect]
     Indication: TEETHING
     Dosage: 1.75ML   ONCE DAILY AS   ORAL
     Route: 048
     Dates: start: 20040918, end: 20041001

REACTIONS (4)
  - CONJUNCTIVITIS INFECTIVE [None]
  - GINGIVAL DISCOLOURATION [None]
  - LIP DISCOLOURATION [None]
  - PIGMENTATION DISORDER [None]
